FAERS Safety Report 25645293 (Version 1)
Quarter: 2025Q3

REPORT INFORMATION
  Report Type: Report from Study
  Country: US (occurrence: US)
  Receive Date: 20250805
  Receipt Date: 20250805
  Transmission Date: 20251020
  Serious: Yes (Other)
  Sender: TEVA
  Company Number: US-TEVA-VS-3357508

PATIENT
  Age: 14 Year
  Sex: Female

DRUGS (1)
  1. CLARAVIS [Suspect]
     Active Substance: ISOTRETINOIN
     Indication: Product used for unknown indication
     Route: 065
     Dates: start: 202507, end: 20250726

REACTIONS (6)
  - Mood swings [Unknown]
  - Migraine [Unknown]
  - Decreased appetite [Unknown]
  - Chapped lips [Unknown]
  - Lip haemorrhage [Unknown]
  - Emotional disorder [Unknown]

NARRATIVE: CASE EVENT DATE: 20250721
